FAERS Safety Report 7644468-6 (Version None)
Quarter: 2011Q3

REPORT INFORMATION
  Report Type: 
  Country: None (occurrence: None)
  Receive Date: 20110729
  Receipt Date: 20110718
  Transmission Date: 20111222
  Serious: Yes (Hospitalization)
  Sender: FDA-Public Use
  Company Number: FR-ROCHE-792118

PATIENT
  Sex: Female
  Weight: 4.7 kg

DRUGS (1)
  1. VALIUM [Suspect]
     Dosage: FREQUENCY: ONCE.
     Route: 054
     Dates: start: 20080408

REACTIONS (2)
  - SOMNOLENCE [None]
  - BRADYPNOEA [None]
